FAERS Safety Report 7166913-5 (Version None)
Quarter: 2010Q4

REPORT INFORMATION
  Report Type: 
  Country: None (occurrence: None)
  Receive Date: 20101213
  Receipt Date: 20101213
  Transmission Date: 20110411
  Serious: No
  Sender: FDA-Public Use
  Company Number: None

PATIENT
  Age: 45 Year
  Sex: Female
  Weight: 49.8957 kg

DRUGS (1)
  1. NYSTATIN [Suspect]
     Indication: INTERTRIGO CANDIDA
     Dosage: TID TOP
     Route: 061
     Dates: start: 20100719, end: 20100917

REACTIONS (2)
  - DERMATITIS CONTACT [None]
  - PRODUCT CONTAMINATION [None]
